FAERS Safety Report 17580300 (Version 2)
Quarter: 2021Q4

REPORT INFORMATION
  Report Type: Spontaneous
  Country: US (occurrence: US)
  Receive Date: 20200325
  Receipt Date: 20211207
  Transmission Date: 20220303
  Serious: No
  Sender: FDA-Public Use
  Company Number: US-SA-2020SA074510

PATIENT
  Age: 64 Year
  Sex: Female

DRUGS (1)
  1. DUPIXENT [Suspect]
     Active Substance: DUPILUMAB
     Indication: Dermatitis
     Dosage: 300 MG, QOW
     Route: 058
     Dates: start: 20191203

REACTIONS (5)
  - Dizziness [Unknown]
  - Pruritus [Unknown]
  - Periorbital pain [Unknown]
  - Injection site pain [Unknown]
  - Product use in unapproved indication [Unknown]
